FAERS Safety Report 16458862 (Version 2)
Quarter: 2019Q3

REPORT INFORMATION
  Report Type: Spontaneous
  Country: US (occurrence: US)
  Receive Date: 20190620
  Receipt Date: 20190925
  Transmission Date: 20191004
  Serious: No
  Sender: FDA-Public Use
  Company Number: US-THERAPEUTICSMD-2019TMD01029

PATIENT
  Sex: Female

DRUGS (2)
  1. IMVEXXY [Suspect]
     Active Substance: ESTRADIOL
     Dosage: 4 ?G, 2X/WEEK
  2. IMVEXXY [Suspect]
     Active Substance: ESTRADIOL
     Dosage: 4 ?G, 1X/WEEK

REACTIONS (6)
  - Peripheral swelling [Recovering/Resolving]
  - Off label use [Recovered/Resolved]
  - Discomfort [Unknown]
  - Headache [Recovering/Resolving]
  - Depression [Recovering/Resolving]
  - Abdominal distension [Recovering/Resolving]
